FAERS Safety Report 7684495-6 (Version None)
Quarter: 2011Q3

REPORT INFORMATION
  Report Type: 
  Country: None (occurrence: None)
  Receive Date: 20110816
  Receipt Date: 20110804
  Transmission Date: 20111222
  Serious: No
  Sender: FDA-Public Use
  Company Number: US-BIOGENIDEC-2011BI029544

PATIENT
  Sex: Male

DRUGS (4)
  1. CELEBREX [Concomitant]
     Indication: ARTHRITIS
  2. BETASERON [Concomitant]
     Indication: MULTIPLE SCLEROSIS
  3. COPAXONE [Concomitant]
     Indication: MULTIPLE SCLEROSIS
  4. TYSABRI [Suspect]
     Indication: MULTIPLE SCLEROSIS
     Route: 042
     Dates: start: 20110119

REACTIONS (5)
  - FALL [None]
  - NEURALGIA [None]
  - IRRITABLE BOWEL SYNDROME [None]
  - RIB FRACTURE [None]
  - MULTIPLE SCLEROSIS [None]
